FAERS Safety Report 14169914 (Version 2)
Quarter: 2018Q1

REPORT INFORMATION
  Report Type: Report from Study
  Country: None (occurrence: US)
  Receive Date: 20171108
  Receipt Date: 20180328
  Transmission Date: 20180508
  Serious: Yes (Hospitalization, Other)
  Sender: FDA-Public Use
  Company Number: US-ABBVIE-17K-163-1837250-00

PATIENT
  Sex: Female

DRUGS (5)
  1. HUMIRA [Suspect]
     Active Substance: ADALIMUMAB
     Route: 058
     Dates: start: 2015, end: 2015
  2. HUMIRA [Suspect]
     Active Substance: ADALIMUMAB
     Route: 058
     Dates: end: 2016
  3. HUMIRA [Suspect]
     Active Substance: ADALIMUMAB
     Route: 058
     Dates: start: 20170706, end: 201801
  4. HUMIRA [Suspect]
     Active Substance: ADALIMUMAB
     Indication: RHEUMATOID ARTHRITIS
     Route: 058
     Dates: start: 2012, end: 2015
  5. MORPHINE [Concomitant]
     Active Substance: MORPHINE
     Indication: RHEUMATOID ARTHRITIS
     Dosage: EXTENDED RELEASE

REACTIONS (19)
  - Ulcer [Unknown]
  - Tooth abscess [Unknown]
  - Malpositioned teeth [Recovered/Resolved]
  - Arthropathy [Unknown]
  - Atrial flutter [Recovered/Resolved]
  - Osteoporosis [Unknown]
  - Hernia [Unknown]
  - General symptom [Unknown]
  - Gingivitis [Recovered/Resolved]
  - Arthritis [Unknown]
  - Subcutaneous abscess [Recovered/Resolved]
  - Osteoarthritis [Recovered/Resolved]
  - Fall [Recovered/Resolved]
  - Infection [Unknown]
  - Blood pressure increased [Recovered/Resolved]
  - Localised infection [Unknown]
  - Joint dislocation [Recovered/Resolved]
  - Asthenia [Unknown]
  - Anaemia [Recovered/Resolved]

NARRATIVE: CASE EVENT DATE: 2015
